FAERS Safety Report 18918221 (Version 1)
Quarter: 2021Q1

REPORT INFORMATION
  Report Type: Spontaneous
  Country: GB (occurrence: GB)
  Receive Date: 20210219
  Receipt Date: 20210219
  Transmission Date: 20210420
  Serious: Yes (Other)
  Sender: FDA-Public Use
  Company Number: GB-TEVA-2021-GB-1880296

PATIENT
  Age: 19 Year
  Sex: Female
  Weight: 56 kg

DRUGS (3)
  1. SUMATRIPTAN. [Suspect]
     Active Substance: SUMATRIPTAN
     Dosage: 100 MG
     Dates: start: 20210203
  2. SUMATRIPTAN. [Concomitant]
     Active Substance: SUMATRIPTAN
     Dosage: ONE TABLET TO BE TAKEN AS SOON AS POSSIBLE AFT...
     Dates: start: 20210121
  3. FEMODETTE [Concomitant]
     Dosage: 1 DOSAGE FORM
     Dates: start: 20201202

REACTIONS (4)
  - Paraesthesia [Unknown]
  - Swelling [Unknown]
  - Dizziness [Unknown]
  - Hypersensitivity [Recovered/Resolved]

NARRATIVE: CASE EVENT DATE: 20210203
